FAERS Safety Report 9462912 (Version 3)
Quarter: 2013Q4

REPORT INFORMATION
  Report Type: Spontaneous
  Country: FR (occurrence: None)
  Receive Date: 20130814
  Receipt Date: 20131129
  Transmission Date: 20140711
  Serious: Yes (Hospitalization)
  Sender: FDA-Public Use
  Company Number: AXC-2013-000373

PATIENT
  Age: 48 Year
  Sex: Female
  Weight: 74 kg

DRUGS (8)
  1. PYLERA [Suspect]
     Indication: GASTRIC ULCER HELICOBACTER
     Dosage: 3 DF, QID, ORAL
     Route: 048
     Dates: start: 20130710, end: 20130720
  2. MOPRAL [Suspect]
     Indication: PRODUCT USED FOR UNKNOWN INDICATION
     Route: 048
     Dates: start: 20130710, end: 20130720
  3. LEVOTYROX (LEVOTHYROXINE SODIUM) [Concomitant]
  4. TRIATEC (CODEINE PHOSPHATE, PARACETAMOL) [Concomitant]
  5. AMLOR (AMLODIPINE BESILATE) [Concomitant]
  6. PARIET (RABEPRAZOLE SODIUM) [Concomitant]
  7. CACIT D3 (CALCIUM CARBONATE, COLECALCIFEROL) [Concomitant]
  8. FORLAX /00754501/ (MACROGOL) [Concomitant]

REACTIONS (17)
  - Behcet^s syndrome [None]
  - Headache [None]
  - General physical health deterioration [None]
  - Fatigue [None]
  - Dizziness [None]
  - Influenza like illness [None]
  - Pain [None]
  - Pyrexia [None]
  - Arthralgia [None]
  - Musculoskeletal stiffness [None]
  - Neuropathy peripheral [None]
  - Abasia [None]
  - Weight bearing difficulty [None]
  - Nausea [None]
  - Wheelchair user [None]
  - Drug ineffective [None]
  - Alanine aminotransferase increased [None]
